FAERS Safety Report 8531632-7 (Version None)
Quarter: 2012Q3

REPORT INFORMATION
  Report Type: 
  Country: None (occurrence: None)
  Receive Date: 20120723
  Receipt Date: 20120718
  Transmission Date: 20120928
  Serious: Yes (Death, Hospitalization)
  Sender: FDA-Public Use
  Company Number: US-BRISTOL-MYERS SQUIBB COMPANY-16328882

PATIENT
  Age: 36 Year
  Sex: Male

DRUGS (7)
  1. YERVOY [Suspect]
     Indication: METASTATIC MALIGNANT MELANOMA
     Dosage: FORMUALATION-VIAL
     Route: 042
     Dates: start: 20111201, end: 20120111
  2. LORTAB [Concomitant]
  3. PRILOSEC [Concomitant]
  4. MEGACE [Concomitant]
  5. FLUOXETINE HCL [Concomitant]
     Route: 048
  6. ZOFRAN [Concomitant]
  7. ASPIRIN [Concomitant]

REACTIONS (3)
  - ENTEROCOLITIS [None]
  - DEATH [None]
  - ANAEMIA [None]
